FAERS Safety Report 12186913 (Version 2)
Quarter: 2016Q1

REPORT INFORMATION
  Report Type: Spontaneous
  Country: ES (occurrence: ES)
  Receive Date: 20160317
  Receipt Date: 20160321
  Transmission Date: 20160526
  Serious: Yes (Hospitalization, Other)
  Sender: FDA-Public Use
  Company Number: PHHY2016ES030721

PATIENT
  Age: 46 Year
  Sex: Female

DRUGS (2)
  1. SATIVEX [Concomitant]
     Active Substance: NABIXIMOLS
     Indication: PAIN
     Route: 065
  2. GILENYA [Suspect]
     Active Substance: FINGOLIMOD HYDROCHLORIDE
     Indication: MULTIPLE SCLEROSIS
     Dosage: UNK
     Route: 065
     Dates: start: 201509

REACTIONS (6)
  - Influenza [Unknown]
  - Respiratory failure [Not Recovered/Not Resolved]
  - Headache [Recovered/Resolved]
  - Pneumonia [Unknown]
  - Multiple sclerosis relapse [Recovered/Resolved]
  - Lymphopenia [Recovering/Resolving]

NARRATIVE: CASE EVENT DATE: 20160303
